FAERS Safety Report 9416169 (Version 1)
Quarter: 2013Q3

REPORT INFORMATION
  Report Type: Spontaneous
  Country: US (occurrence: None)
  Receive Date: 20130723
  Receipt Date: 20130723
  Transmission Date: 20140515
  Serious: No
  Sender: FDA-Public Use
  Company Number: None

PATIENT
  Age: 65 Year
  Sex: Male
  Weight: 63.5 kg

DRUGS (3)
  1. ZYRETEC [Suspect]
     Indication: HYPERSENSITIVITY
     Route: 048
     Dates: start: 20130715, end: 20130719
  2. LOVASTATIN [Concomitant]
  3. VITAMIN D [Concomitant]

REACTIONS (1)
  - Palpitations [None]
